FAERS Safety Report 8608424-3 (Version None)
Quarter: 2012Q3

REPORT INFORMATION
  Report Type: 
  Country: None (occurrence: None)
  Receive Date: 20120821
  Receipt Date: 20120810
  Transmission Date: 20120928
  Serious: Yes (Other)
  Sender: FDA-Public Use
  Company Number: US-ACTELION-A-US2012-68020

PATIENT
  Age: 30 Year
  Sex: Female

DRUGS (3)
  1. TRACLEER [Suspect]
     Dosage: UNK
     Route: 048
     Dates: start: 20120802
  2. TRACLEER [Suspect]
     Indication: PULMONARY ARTERIAL HYPERTENSION
     Dosage: UNK
     Route: 048
     Dates: start: 20090301, end: 20120531
  3. SILDENAFIL [Concomitant]

REACTIONS (2)
  - ABORTION SPONTANEOUS [None]
  - PREGNANCY [None]
